FAERS Safety Report 15015223 (Version 2)
Quarter: 2018Q2

REPORT INFORMATION
  Report Type: Spontaneous
  Country: PT (occurrence: PT)
  Receive Date: 20180615
  Receipt Date: 20180627
  Transmission Date: 20180711
  Serious: Yes (Hospitalization, Other)
  Sender: FDA-Public Use
  Company Number: PT-AUROBINDO-AUR-APL-2017-46400

PATIENT

DRUGS (22)
  1. SIMVASTATIN. [Suspect]
     Active Substance: SIMVASTATIN
     Dosage: 20 MILLIGRAM
     Route: 065
  2. ACTILYSE [Suspect]
     Active Substance: ALTEPLASE
     Dosage: STARTED 256 MINUTES AFTER SYMPTOMS ONSET (58.5 MG) ()
     Route: 042
  3. BROMAZEPAM [Suspect]
     Active Substance: BROMAZEPAM
     Route: 065
  4. ENTECAVIR. [Concomitant]
     Active Substance: ENTECAVIR
     Indication: PRODUCT USED FOR UNKNOWN INDICATION
     Dosage: UNK
     Route: 065
  5. ACETYLSALICYLIC ACID [Suspect]
     Active Substance: ASPIRIN
     Indication: PRODUCT USED FOR UNKNOWN INDICATION
     Dosage: UNK
     Route: 065
  6. SIMVASTATIN. [Suspect]
     Active Substance: SIMVASTATIN
     Indication: PRODUCT USED FOR UNKNOWN INDICATION
     Dosage: 20 MG, QD
     Route: 065
  7. ACTILYSE [Suspect]
     Active Substance: ALTEPLASE
     Dosage: STARTED 256 MINUTES AFTER SYMPTOMS ONSET
     Route: 042
  8. OMEPRAZOLE. [Suspect]
     Active Substance: OMEPRAZOLE
     Indication: PRODUCT USED FOR UNKNOWN INDICATION
     Dosage: 20 MG, QD
     Route: 065
  9. BROMAZEPAM [Suspect]
     Active Substance: BROMAZEPAM
     Indication: PRODUCT USED FOR UNKNOWN INDICATION
     Dosage: 3 MILLIGRAM, DAILY
     Route: 065
  10. ENTECAVIR. [Concomitant]
     Active Substance: ENTECAVIR
     Dosage: ()
     Route: 065
  11. ACETYLSALICYLIC ACID [Suspect]
     Active Substance: ASPIRIN
     Dosage: 150 MG, QD
     Route: 065
  12. ACETYLSALICYLIC ACID [Suspect]
     Active Substance: ASPIRIN
     Route: 065
  13. ACETYLSALICYLIC ACID [Suspect]
     Active Substance: ASPIRIN
     Route: 065
  14. ACETYLSALICYLIC ACID [Suspect]
     Active Substance: ASPIRIN
     Route: 065
  15. OMEPRAZOLE. [Suspect]
     Active Substance: OMEPRAZOLE
     Dosage: 20 MILLIGRAM
     Route: 065
  16. ACTILYSE [Suspect]
     Active Substance: ALTEPLASE
     Indication: ISCHAEMIC STROKE
     Dosage: UNK
     Route: 065
  17. ACTILYSE [Suspect]
     Active Substance: ALTEPLASE
     Dosage: 0.9 MG/KG (58.5- 2 MG) STARTED 256 MINUTES AFTER SYMPTOMS ONSET ()
     Route: 042
  18. ENTECAVIR. [Concomitant]
     Active Substance: ENTECAVIR
     Dosage: ()
  19. ENTECAVIR. [Concomitant]
     Active Substance: ENTECAVIR
     Dosage: UNK, OW (1)
  20. ACTILYSE [Suspect]
     Active Substance: ALTEPLASE
     Dosage: UNK
     Route: 065
  21. BROMAZEPAM [Suspect]
     Active Substance: BROMAZEPAM
     Dosage: 3 MG, QD
     Route: 065
  22. ENTECAVIR. [Concomitant]
     Active Substance: ENTECAVIR
     Dosage: ()
     Route: 065

REACTIONS (6)
  - Headache [Unknown]
  - Contraindicated product administered [Unknown]
  - Platelet dysfunction [Unknown]
  - Labelled drug-drug interaction medication error [Unknown]
  - Drug interaction [Unknown]
  - Parotid gland haemorrhage [Unknown]
